FAERS Safety Report 5703141-1 (Version None)
Quarter: 2008Q2

REPORT INFORMATION
  Report Type: 
  Country: None (occurrence: None)
  Receive Date: 20080411
  Receipt Date: 20080331
  Transmission Date: 20081010
  Serious: Yes (Other)
  Sender: FDA-Public Use
  Company Number: US-PFIZER INC-2007102887

PATIENT
  Sex: Male
  Weight: 88.5 kg

DRUGS (11)
  1. LYRICA [Suspect]
     Indication: BACK PAIN
  2. LYRICA [Suspect]
     Indication: GROIN PAIN
  3. TRICOR [Concomitant]
  4. ZOCOR [Concomitant]
  5. ENALAPRIL MALEATE [Concomitant]
  6. ACETYLSALICYLIC ACID SRT [Concomitant]
  7. HYDROCHLOROTHIAZIDE [Concomitant]
  8. AMLODIPINE BESYLATE [Concomitant]
  9. METOPROLOL TARTRATE [Concomitant]
  10. VITAMINS [Concomitant]
  11. TYLENOL (CAPLET) [Concomitant]

REACTIONS (5)
  - BALANCE DISORDER [None]
  - DIZZINESS [None]
  - HERPES ZOSTER [None]
  - PRURITUS [None]
  - SKIN HAEMORRHAGE [None]
